FAERS Safety Report 5816104-2 (Version None)
Quarter: 2008Q3

REPORT INFORMATION
  Report Type: 
  Country: None (occurrence: None)
  Receive Date: 20080716
  Receipt Date: 20080716
  Transmission Date: 20090109
  Serious: Yes (Other)
  Sender: FDA-Public Use
  Company Number: None

PATIENT
  Age: 63 Year
  Sex: Female
  Weight: 56.246 kg

DRUGS (3)
  1. DIFFERIN [Suspect]
     Indication: MILIA
     Dates: start: 20080702, end: 20080709
  2. ANTIBIOTIC EYE DROPS [Concomitant]
  3. PREDNISONE EYE DROPS [Concomitant]

REACTIONS (2)
  - CONJUNCTIVITIS ALLERGIC [None]
  - SCAR [None]
